FAERS Safety Report 14555833 (Version 2)
Quarter: 2018Q1

REPORT INFORMATION
  Report Type: Spontaneous
  Country: US (occurrence: US)
  Receive Date: 20180221
  Receipt Date: 20180315
  Transmission Date: 20180509
  Serious: No
  Sender: FDA-Public Use
  Company Number: US-LUPIN PHARMACEUTICALS INC.-2018-00578

PATIENT
  Age: 84 Year
  Sex: Male
  Weight: 104.31 kg

DRUGS (1)
  1. DICLOFENAC SODIUM TOPICAL SOLUTION [Suspect]
     Active Substance: DICLOFENAC SODIUM
     Indication: ARTHRALGIA
     Dosage: 150 ML, UNK
     Route: 061
     Dates: start: 20180117, end: 20180117

REACTIONS (3)
  - Liquid product physical issue [Unknown]
  - Skin burning sensation [Recovering/Resolving]
  - Incorrect dose administered [None]

NARRATIVE: CASE EVENT DATE: 20180117
